FAERS Safety Report 6894573-7 (Version None)
Quarter: 2010Q3

REPORT INFORMATION
  Report Type: 
  Country: None (occurrence: None)
  Receive Date: 20100802
  Receipt Date: 20100720
  Transmission Date: 20110219
  Serious: Yes (Other)
  Sender: FDA-Public Use
  Company Number: PHHY2010GR47332

PATIENT
  Age: 77 Year
  Sex: Female

DRUGS (5)
  1. DIOVAN HCT [Suspect]
     Indication: HYPERTENSION
     Dosage: 160/12.5 MG
     Route: 048
     Dates: start: 20100301
  2. FISIOTENS [Concomitant]
  3. LASIX [Concomitant]
  4. MEDROL [Concomitant]
  5. NEXIUM [Concomitant]

REACTIONS (1)
  - VENOUS INSUFFICIENCY [None]
